FAERS Safety Report 9851824 (Version 1)
Quarter: 2014Q1

REPORT INFORMATION
  Report Type: Spontaneous
  Country: US (occurrence: US)
  Receive Date: 20140129
  Receipt Date: 20140129
  Transmission Date: 20141002
  Serious: No
  Sender: FDA-Public Use
  Company Number: US-009507513-1401USA012545

PATIENT
  Age: 41 Year
  Sex: Female

DRUGS (2)
  1. DULERA [Suspect]
     Dosage: 2 PUFFS, TWICE DAILY (MORNING AND EVENING)
     Route: 055
     Dates: start: 201305
  2. SINGULAIR [Concomitant]

REACTIONS (3)
  - Dyspnoea [Recovering/Resolving]
  - Drug dose omission [Unknown]
  - Product quality issue [Unknown]
